FAERS Safety Report 4932131-1 (Version None)
Quarter: 2006Q1

REPORT INFORMATION
  Report Type: 
  Country: None (occurrence: None)
  Receive Date: 20060303
  Receipt Date: 20060224
  Transmission Date: 20060701
  Serious: Yes (Other)
  Sender: FDA-Public Use
  Company Number: PHEH2006US02631

PATIENT
  Age: 70 Year
  Sex: Female

DRUGS (7)
  1. ZOMETA [Suspect]
     Indication: BREAST CANCER METASTATIC
     Dosage: 4 MG EVERY MONTH
     Dates: start: 20040101, end: 20060101
  2. FEMARA [Concomitant]
  3. LOTENSIN [Concomitant]
  4. MEGACE [Concomitant]
  5. XELODA [Concomitant]
  6. AVASTIN [Concomitant]
  7. FENTANYL CITRATE [Concomitant]
     Route: 062

REACTIONS (2)
  - OSTEONECROSIS [None]
  - TOOTH LOSS [None]
